FAERS Safety Report 5913075-5 (Version None)
Quarter: 2008Q4

REPORT INFORMATION
  Report Type: 
  Country: None (occurrence: None)
  Receive Date: 20081008
  Receipt Date: 20081008
  Transmission Date: 20090506
  Serious: Yes (Disabling)
  Sender: FDA-Public Use
  Company Number: None

PATIENT
  Age: 72 Year
  Sex: Female
  Weight: 95.2554 kg

DRUGS (3)
  1. BONIVA [Suspect]
     Indication: BONE DISORDER
     Dosage: 1 TABLET 1 PER MOUTH
     Route: 048
     Dates: start: 20080520
  2. BONIVA [Suspect]
     Indication: BONE DISORDER
     Dosage: 1 TABLET 1 PER MOUTH
     Route: 048
     Dates: start: 20080720
  3. BONIVA [Suspect]
     Indication: BONE DISORDER
     Dosage: 1 TABLET 1 PER MOUTH
     Route: 048
     Dates: start: 20080820

REACTIONS (2)
  - RESORPTION BONE INCREASED [None]
  - TOOTH LOSS [None]
